FAERS Safety Report 9495646 (Version 1)
Quarter: 2013Q3

REPORT INFORMATION
  Report Type: Spontaneous
  Country: US (occurrence: US)
  Receive Date: 20130903
  Receipt Date: 20130903
  Transmission Date: 20140515
  Serious: No
  Sender: FDA-Public Use
  Company Number: US-TEVA-429138USA

PATIENT
  Sex: Female
  Weight: 74.46 kg

DRUGS (5)
  1. PARAGARD 380A [Suspect]
     Indication: CONTRACEPTION
     Route: 015
     Dates: end: 20130827
  2. PROZAC [Concomitant]
     Indication: MENTAL DISORDER
  3. VICODIN [Concomitant]
     Indication: PAIN
  4. FLEXERIL [Concomitant]
     Indication: PAIN
  5. VISTINI [Concomitant]
     Indication: MENTAL DISORDER

REACTIONS (1)
  - Menorrhagia [Unknown]
